FAERS Safety Report 8962578 (Version 1)
Quarter: 2012Q4

REPORT INFORMATION
  Report Type: 
  Country: US (occurrence: US)
  Receive Date: 20121213
  Receipt Date: 20121213
  Transmission Date: 20130627
  Serious: Yes (Other)
  Sender: FDA-Public Use
  Company Number: US-PFIZER INC-2012298980

PATIENT
  Age: 61 Year
  Sex: Male
  Weight: 106 kg

DRUGS (7)
  1. LIPITOR [Suspect]
     Indication: BLOOD CHOLESTEROL ABNORMAL
     Dosage: 10 mg, 1x/day
     Route: 048
  2. SINEMET [Concomitant]
     Indication: PARKINSON^S DISEASE
     Dosage: UNK
  3. REQUIP [Concomitant]
     Indication: PARKINSON^S DISEASE
     Dosage: UNK
  4. ALLOPURINOL [Concomitant]
     Indication: PSEUDOGOUT
     Dosage: UNK
  5. VIAGRA [Concomitant]
     Dosage: UNK
  6. HYDROCODONE [Concomitant]
     Dosage: UNK
  7. PREDNISONE [Concomitant]
     Dosage: UNK

REACTIONS (7)
  - Myocardial infarction [Unknown]
  - Pulmonary artery aneurysm [Not Recovered/Not Resolved]
  - Nephrolithiasis [Unknown]
  - Head injury [Recovered/Resolved]
  - Abdominal pain upper [Not Recovered/Not Resolved]
  - Back pain [Recovered/Resolved]
  - Blood urine present [Recovered/Resolved]
